FAERS Safety Report 8880430 (Version 2)
Quarter: 2012Q4

REPORT INFORMATION
  Report Type: 
  Country: US (occurrence: US)
  Receive Date: 20121031
  Receipt Date: 20121116
  Transmission Date: 20130627
  Serious: Yes (Hospitalization)
  Sender: FDA-Public Use
  Company Number: US-ASTRAZENECA-2012SE81226

PATIENT
  Age: 46 Year
  Sex: Female

DRUGS (2)
  1. SYMBICORT PMDI [Suspect]
     Dosage: UNKNOWN STRENGTH AND FREQUENCY
     Route: 055
  2. NEXIUM [Suspect]
     Route: 048

REACTIONS (3)
  - Pneumonia [Unknown]
  - Respiratory disorder [Unknown]
  - Oedema peripheral [Unknown]
